FAERS Safety Report 17927914 (Version 1)
Quarter: 2020Q2

REPORT INFORMATION
  Report Type: Spontaneous
  Country: US (occurrence: US)
  Receive Date: 20200622
  Receipt Date: 20200622
  Transmission Date: 20200714
  Serious: No
  Sender: FDA-Public Use
  Company Number: None

PATIENT
  Age: 53 Year
  Sex: Male
  Weight: 98 kg

DRUGS (1)
  1. DOBUTAMINE (DOBUTAMINE HCL 0.25MG/ML 0.25MG/ML DEXTTROSE 5% INJ, BAG, [Suspect]
     Active Substance: DOBUTAMINE HYDROCHLORIDE
     Indication: CORONARY ARTERY DISEASE
     Route: 042
     Dates: start: 20200228, end: 20200228

REACTIONS (4)
  - Electrocardiogram abnormal [None]
  - Hypertension [None]
  - Bradycardia [None]
  - Headache [None]

NARRATIVE: CASE EVENT DATE: 20191031
